FAERS Safety Report 18311268 (Version 1)
Quarter: 2020Q3

REPORT INFORMATION
  Report Type: Spontaneous
  Country: US (occurrence: US)
  Receive Date: 20200924
  Receipt Date: 20200924
  Transmission Date: 20201103
  Serious: No
  Sender: FDA-Public Use
  Company Number: None

PATIENT
  Age: 67 Year
  Sex: Female

DRUGS (1)
  1. PREGABALIN (PREGABALIN 75MG CAP, ORAL) [Suspect]
     Active Substance: PREGABALIN
     Indication: NEUROPATHY PERIPHERAL
     Route: 048
     Dates: start: 20180406, end: 20180409

REACTIONS (3)
  - Headache [None]
  - Myalgia [None]
  - Eye pain [None]

NARRATIVE: CASE EVENT DATE: 20180409
